FAERS Safety Report 5352510-0 (Version None)
Quarter: 2007Q2

REPORT INFORMATION
  Report Type: 
  Country: None (occurrence: None)
  Receive Date: 20070611
  Receipt Date: 20070530
  Transmission Date: 20071010
  Serious: Yes (Other)
  Sender: FDA-Public Use
  Company Number: FR-ASTRAZENECA-2007CG00839

PATIENT
  Age: 23 Year
  Sex: Female

DRUGS (3)
  1. NEXIUM [Suspect]
     Indication: SELF-INDUCED VOMITING
     Route: 048
     Dates: start: 20040501, end: 20070529
  2. INTERFERON [Concomitant]
     Indication: MALIGNANT MELANOMA
     Dates: start: 20070401
  3. HOMEOPATHY [Concomitant]
     Indication: ANOREXIA AND BULIMIA SYNDROME

REACTIONS (1)
  - NEUTROPENIA [None]
